FAERS Safety Report 18353557 (Version 1)
Quarter: 2020Q4

REPORT INFORMATION
  Report Type: Spontaneous
  Country: LB (occurrence: LB)
  Receive Date: 20201007
  Receipt Date: 20201007
  Transmission Date: 20210114
  Serious: Yes (Hospitalization, Other)
  Sender: FDA-Public Use
  Company Number: LB-ROCHE-2688812

PATIENT
  Age: 73 Year
  Sex: Female

DRUGS (5)
  1. CYCLOPHOSPHAMIDE. [Suspect]
     Active Substance: CYCLOPHOSPHAMIDE
     Indication: B-CELL LYMPHOMA STAGE IV
     Dosage: 6 CYCLES
     Route: 065
     Dates: start: 20200219, end: 20200622
  2. PREDNISONE. [Suspect]
     Active Substance: PREDNISONE
     Indication: B-CELL LYMPHOMA STAGE IV
     Dosage: 6 CYCLES
     Route: 065
     Dates: start: 20200219, end: 20200622
  3. VINCRISTINE [Suspect]
     Active Substance: VINCRISTINE
     Indication: B-CELL LYMPHOMA STAGE IV
     Dosage: 6 CYCLES
     Route: 065
     Dates: start: 20200219, end: 20200622
  4. DOXORUBICIN [Suspect]
     Active Substance: DOXORUBICIN
     Indication: B-CELL LYMPHOMA STAGE IV
     Dosage: 6 CYCLES
     Route: 065
     Dates: start: 20200219, end: 20200622
  5. GAZYVA [Suspect]
     Active Substance: OBINUTUZUMAB
     Indication: B-CELL LYMPHOMA STAGE IV
     Dosage: 6 CYCLES
     Route: 042
     Dates: start: 20200219, end: 20200622

REACTIONS (4)
  - Urinary tract infection enterococcal [Unknown]
  - Febrile neutropenia [Unknown]
  - Cellulitis [Unknown]
  - Atrial fibrillation [Unknown]
